FAERS Safety Report 6575133-4 (Version None)
Quarter: 2010Q1

REPORT INFORMATION
  Report Type: 
  Country: None (occurrence: None)
  Receive Date: 20100201
  Receipt Date: 20100119
  Transmission Date: 20100710
  Serious: Yes (Death, Other)
  Sender: FDA-Public Use
  Company Number: 1000011513

PATIENT
  Age: 49 Year
  Sex: Female

DRUGS (3)
  1. ESCITALOPRAM [Suspect]
     Indication: DEPRESSION
     Dosage: 10 MG (10 MG, 1 IN 1 D), ORAL
     Route: 048
     Dates: start: 20091218, end: 20100115
  2. ANTIPSYCHOTICS [Concomitant]
  3. INTERFERON [Concomitant]

REACTIONS (2)
  - ALCOHOL USE [None]
  - COMPLETED SUICIDE [None]
